FAERS Safety Report 21997664 (Version 1)
Quarter: 2023Q1

REPORT INFORMATION
  Report Type: Spontaneous
  Country: AU (occurrence: AU)
  Receive Date: 20230216
  Receipt Date: 20230216
  Transmission Date: 20230418
  Serious: Yes (Other)
  Sender: FDA-Public Use
  Company Number: AU-AMGEN-AUSSP2023025654

PATIENT
  Age: 33 Year
  Sex: Male
  Weight: 68 kg

DRUGS (21)
  1. PEGFILGRASTIM [Suspect]
     Active Substance: PEGFILGRASTIM
     Indication: B-cell lymphoma recurrent
     Dosage: UNK
     Route: 065
  2. RITUXIMAB [Concomitant]
     Active Substance: RITUXIMAB
     Indication: B-cell lymphoma recurrent
     Dosage: UNK
     Route: 040
     Dates: start: 20210622, end: 20211001
  3. RITUXIMAB [Concomitant]
     Active Substance: RITUXIMAB
     Indication: Diffuse large B-cell lymphoma
     Dosage: UNK
     Route: 040
     Dates: start: 20220118, end: 20220215
  4. ADRIAMYCIN [Concomitant]
     Active Substance: DOXORUBICIN HYDROCHLORIDE
     Indication: Diffuse large B-cell lymphoma
     Dosage: UNK
     Route: 040
     Dates: start: 20210622, end: 20211001
  5. ADRIAMYCIN [Concomitant]
     Active Substance: DOXORUBICIN HYDROCHLORIDE
     Indication: B-cell lymphoma recurrent
  6. LEUCOVORIN CALCIUM [Concomitant]
     Active Substance: LEUCOVORIN CALCIUM
     Indication: B-cell lymphoma recurrent
     Dosage: UNK
     Route: 065
  7. CYCLOPHOSPHAMIDE [Concomitant]
     Active Substance: CYCLOPHOSPHAMIDE
     Indication: B-cell lymphoma recurrent
     Dosage: UNK
     Route: 040
     Dates: start: 20210622, end: 20211001
  8. CYCLOPHOSPHAMIDE [Concomitant]
     Active Substance: CYCLOPHOSPHAMIDE
     Indication: Diffuse large B-cell lymphoma
  9. CYTARABINE [Concomitant]
     Active Substance: CYTARABINE
     Indication: B-cell lymphoma recurrent
     Dosage: UNK
     Route: 065
  10. DEXAMETHASONE [Concomitant]
     Active Substance: DEXAMETHASONE
     Indication: B-cell lymphoma recurrent
     Dosage: UNK
     Route: 040
     Dates: start: 20210622, end: 20211001
  11. DEXAMETHASONE [Concomitant]
     Active Substance: DEXAMETHASONE
     Indication: Diffuse large B-cell lymphoma
  12. DOXORUBICIN HYDROCHLORIDE [Concomitant]
     Active Substance: DOXORUBICIN HYDROCHLORIDE
     Indication: B-cell lymphoma recurrent
     Dosage: UNK
     Route: 065
  13. GEMCITABINE HYDROCHLORIDE [Concomitant]
     Active Substance: GEMCITABINE HYDROCHLORIDE
     Indication: Diffuse large B-cell lymphoma
     Dosage: UNK
     Route: 040
     Dates: start: 20220118, end: 20220215
  14. GEMCITABINE HYDROCHLORIDE [Concomitant]
     Active Substance: GEMCITABINE HYDROCHLORIDE
     Indication: B-cell lymphoma recurrent
  15. MESNA [Concomitant]
     Active Substance: MESNA
     Indication: B-cell lymphoma recurrent
     Dosage: UNK
     Route: 065
  16. METHOTREXATE [Concomitant]
     Active Substance: METHOTREXATE
     Indication: B-cell lymphoma recurrent
     Dosage: UNK
     Route: 065
  17. VINCRISTINE [Concomitant]
     Active Substance: VINCRISTINE
     Indication: B-cell lymphoma recurrent
     Dosage: UNK
     Route: 040
     Dates: start: 20210622, end: 20211001
  18. VINCRISTINE [Concomitant]
     Active Substance: VINCRISTINE
     Indication: Diffuse large B-cell lymphoma
  19. VINORELBINE [Concomitant]
     Active Substance: VINORELBINE TARTRATE
     Indication: Diffuse large B-cell lymphoma
     Dosage: UNK
     Route: 040
     Dates: start: 20220118, end: 20220215
  20. VINORELBINE [Concomitant]
     Active Substance: VINORELBINE TARTRATE
     Indication: B-cell lymphoma recurrent
  21. PREDNISONE [Concomitant]
     Active Substance: PREDNISONE

REACTIONS (5)
  - B-cell lymphoma recurrent [Unknown]
  - Neurotoxicity [Unknown]
  - Disease progression [Unknown]
  - Hepatitis B core antibody positive [Unknown]
  - Liver function test increased [Unknown]
